FAERS Safety Report 18630198 (Version 1)
Quarter: 2020Q4

REPORT INFORMATION
  Report Type: Spontaneous
  Country: US (occurrence: US)
  Receive Date: 20201217
  Receipt Date: 20201217
  Transmission Date: 20210114
  Serious: Yes (Death)
  Sender: FDA-Public Use
  Company Number: US-ABBVIE-20K-163-3697260-00

PATIENT
  Age: 66 Year
  Sex: Female

DRUGS (1)
  1. IMBRUVICA [Suspect]
     Active Substance: IBRUTINIB
     Indication: PRODUCT USED FOR UNKNOWN INDICATION
     Dosage: 140 MG 3 CAPSULES DAILY
     Route: 048
     Dates: start: 20190819

REACTIONS (1)
  - Death [Fatal]

NARRATIVE: CASE EVENT DATE: 20201214
